FAERS Safety Report 4842606-1 (Version None)
Quarter: 2005Q4

REPORT INFORMATION
  Report Type: 
  Country: None (occurrence: None)
  Receive Date: 20051201
  Receipt Date: 20051031
  Transmission Date: 20060501
  Serious: Yes (Life-Threatening)
  Sender: FDA-Public Use
  Company Number: JP-JPN-A20052700

PATIENT
  Age: 76 Year
  Sex: Male
  Weight: 54 kg

DRUGS (2)
  1. MODACIN [Suspect]
     Indication: CHOLANGITIS
     Dosage: 1G SEE DOSAGE TEXT
     Route: 042
     Dates: start: 20050702, end: 20050705
  2. VENOGLOBULIN-I [Suspect]
     Dosage: 5MG PER DAY
     Route: 042
     Dates: start: 20050701, end: 20050703

REACTIONS (7)
  - ANTI-PLATELET ANTIBODY [None]
  - DISSEMINATED INTRAVASCULAR COAGULATION [None]
  - HAEMOGLOBIN DECREASED [None]
  - HAEMORRHAGE [None]
  - HAEMORRHAGIC DIATHESIS [None]
  - MELAENA [None]
  - THROMBOCYTOPENIA [None]
